FAERS Safety Report 15069875 (Version 1)
Quarter: 2018Q2

REPORT INFORMATION
  Report Type: Spontaneous
  Country: US (occurrence: US)
  Receive Date: 20180626
  Receipt Date: 20180626
  Transmission Date: 20180711
  Serious: No
  Sender: FDA-Public Use
  Company Number: US-ELI_LILLY_AND_COMPANY-US201806010800

PATIENT
  Sex: Female

DRUGS (4)
  1. LARTRUVO [Suspect]
     Active Substance: OLARATUMAB
     Indication: BREAST CANCER METASTATIC
  2. LARTRUVO [Suspect]
     Active Substance: OLARATUMAB
     Indication: SOFT TISSUE SARCOMA
     Dosage: 1 DF, OTHER
     Route: 042
  3. DOXORUBICIN [Suspect]
     Active Substance: DOXORUBICIN
     Indication: BREAST CANCER METASTATIC
  4. DOXORUBICIN [Suspect]
     Active Substance: DOXORUBICIN
     Indication: SOFT TISSUE SARCOMA
     Dosage: 1 DF, OTHER
     Route: 042

REACTIONS (1)
  - Uveitis [Recovered/Resolved]
